FAERS Safety Report 12236039 (Version 1)
Quarter: 2016Q2

REPORT INFORMATION
  Report Type: Spontaneous
  Country: US (occurrence: US)
  Receive Date: 20160404
  Receipt Date: 20160404
  Transmission Date: 20160815
  Serious: Yes (Other)
  Sender: FDA-Public Use
  Company Number: US-SA-2016SA064723

PATIENT
  Age: 72 Year
  Sex: Female

DRUGS (1)
  1. ALLEGRA-D [Suspect]
     Active Substance: FEXOFENADINE\PSEUDOEPHEDRINE
     Route: 048

REACTIONS (6)
  - Cough [Unknown]
  - Dysphagia [Unknown]
  - Speech disorder [Unknown]
  - Choking [Unknown]
  - Sputum increased [Unknown]
  - Dyspnoea [Unknown]
